FAERS Safety Report 4618083-2 (Version None)
Quarter: 2005Q1

REPORT INFORMATION
  Report Type: 
  Country: None (occurrence: None)
  Receive Date: 20050322
  Receipt Date: 20050315
  Transmission Date: 20050727
  Serious: Yes (Death)
  Sender: FDA-Public Use
  Company Number: B0374722A

PATIENT
  Sex: 0

DRUGS (2)
  1. VINORELBINE TARTRATE [Suspect]
     Dosage: 25 MG/M2/CYCLIC
  2. CISPLATIN [Suspect]
     Dosage: 100 MG/M2/CYCLIC

REACTIONS (1)
  - HAEMOPTYSIS [None]
